FAERS Safety Report 5846794-X (Version None)
Quarter: 2008Q3

REPORT INFORMATION
  Report Type: 
  Country: None (occurrence: None)
  Receive Date: 20080815
  Receipt Date: 20080806
  Transmission Date: 20090109
  Serious: Yes (Hospitalization)
  Sender: FDA-Public Use
  Company Number: US-JNJFOC-20080801478

PATIENT
  Sex: Female
  Weight: 28 kg

DRUGS (4)
  1. INFLIXIMAB [Suspect]
     Route: 042
  2. INFLIXIMAB [Suspect]
     Indication: CROHN'S DISEASE
     Route: 042
  3. PREDNISONE TAB [Concomitant]
  4. HUMIRA [Concomitant]

REACTIONS (1)
  - CROHN'S DISEASE [None]
